FAERS Safety Report 24720409 (Version 2)
Quarter: 2025Q1

REPORT INFORMATION
  Report Type: Spontaneous
  Country: GB (occurrence: GB)
  Receive Date: 20241211
  Receipt Date: 20250123
  Transmission Date: 20250408
  Serious: Yes (Other)
  Sender: Kenvue
  Company Number: IE-PERRIGO-24IE011018

PATIENT

DRUGS (3)
  1. ACETAMINOPHEN [Suspect]
     Active Substance: ACETAMINOPHEN
     Indication: Product used for unknown indication
     Route: 065
  2. ACETAMINOPHEN [Suspect]
     Active Substance: ACETAMINOPHEN
     Indication: Product used for unknown indication
     Route: 065
  3. CODEINE [Suspect]
     Active Substance: CODEINE
     Indication: Product used for unknown indication
     Route: 065

REACTIONS (1)
  - Drug abuse [Unknown]
